FAERS Safety Report 12202194 (Version 9)
Quarter: 2016Q4

REPORT INFORMATION
  Report Type: Spontaneous
  Country: US (occurrence: US)
  Receive Date: 20160322
  Receipt Date: 20161229
  Transmission Date: 20170207
  Serious: No
  Sender: FDA-Public Use
  Company Number: PHEH2016US006824

PATIENT
  Sex: Female
  Weight: 93.88 kg

DRUGS (5)
  1. ZOFRAN [Suspect]
     Active Substance: ONDANSETRON HYDROCHLORIDE
     Indication: VOMITING IN PREGNANCY
     Dosage: 4 MG, QID
     Route: 048
     Dates: start: 20030916, end: 20031008
  2. ZOFRAN [Suspect]
     Active Substance: ONDANSETRON HYDROCHLORIDE
     Dosage: 8 MG, TID
     Route: 048
     Dates: start: 20031008, end: 20040105
  3. ZOFRAN [Suspect]
     Active Substance: ONDANSETRON HYDROCHLORIDE
     Indication: VOMITING IN PREGNANCY
     Dosage: UNK
     Route: 042
     Dates: start: 20031008, end: 20031008
  4. ZOFRAN [Suspect]
     Active Substance: ONDANSETRON HYDROCHLORIDE
     Dosage: UNK
     Route: 042
     Dates: start: 20040105, end: 20040105
  5. ZOFRAN ODT [Suspect]
     Active Substance: ONDANSETRON HYDROCHLORIDE
     Indication: VOMITING IN PREGNANCY
     Dosage: 4 MG TO 8 MG, TID
     Route: 048
     Dates: start: 20030923, end: 20040420

REACTIONS (7)
  - Product use issue [Unknown]
  - Constipation [Unknown]
  - Maternal exposure during pregnancy [Unknown]
  - Anxiety [Unknown]
  - Emotional distress [Unknown]
  - Injury [Unknown]
  - Pain [Unknown]
